FAERS Safety Report 10367726 (Version 1)
Quarter: 2014Q1

REPORT INFORMATION
  Report Type: Spontaneous
  Country: US (occurrence: None)
  Receive Date: 20140306
  Receipt Date: 20140306
  Transmission Date: 20141002
  Serious: Yes (Hospitalization)
  Sender: FDA-Public Use
  Company Number: 163-21880-12101982

PATIENT
  Age: 58 Year
  Sex: Male
  Weight: 98.9 kg

DRUGS (33)
  1. REVLIMID [Suspect]
     Indication: PLASMA CELL MYELOMA
     Route: 048
     Dates: start: 20121002, end: 201210
  2. DEXAMETHASONE (DEXAMETHASONE) [Suspect]
     Indication: PLASMA CELL MYELOMA
     Route: 048
     Dates: start: 20121002, end: 20121002
  3. ASPIRIN (ACETYLSALICYLIC ACID) [Concomitant]
  4. MULTIVITAMINS (MILTIVITAMINS) [Concomitant]
  5. PEPCID (FAMOTIDINE) [Concomitant]
  6. ZANTAC (RANITIDINE HYDROCHLORIDE) [Concomitant]
  7. BENADRYL (DIPHENHYDRAMINE) [Concomitant]
  8. TYLENOL (PARACETAMOL) [Concomitant]
  9. SODIUM CHLORIDE (SODIUM CHLORIDE) [Concomitant]
  10. PANTOPRAZOLE (PANTOPRAZOLE) [Concomitant]
  11. METHYLPRESNIDONE (METHYLPRESNIDONE) [Concomitant]
  12. ALBUTEROL (SALBUTAMOL) [Concomitant]
  13. BUDNESONIDE (BUDNESONIDE) [Concomitant]
  14. VITAMIN C (ASCORBIC ACID) [Concomitant]
  15. CALCIUM -VITAMIN D (CALCICUM D3) [Concomitant]
  16. VITAMIN B-12 (CYANOCOBALAMIN) [Concomitant]
  17. VITAMIN E (TOCOPHEROL) [Concomitant]
  18. COMBIVENT (COMBIVENT) [Concomitant]
  19. MAGIC MOUTHWASH (ALL OTHER THERAPEUTIC PRODUCTS) [Concomitant]
  20. CHERATUSSIN A (CHERATUSSIN COUGH SYRUP) [Concomitant]
  21. AUGMENTIN [Concomitant]
  22. POTASSIUM CHLORIDE (POTASSIUM CHLORIDE) [Concomitant]
  23. BACLOFEN (BACLOFEN) [Concomitant]
  24. LEVAQUIN (LEVOFLOXACIN) [Concomitant]
  25. ZOMETA (ZOLEDERONIC ACID) [Concomitant]
  26. ARIXTRA (FOUNDAPARINUX SODIUM) [Concomitant]
  27. ROBITUSSIN (CHERACOL SYRUP) [Concomitant]
  28. IMODIUM (LOPERAMIDE) [Concomitant]
  29. ROCEPHINE (CEFTRIAXONE SODIUM) [Concomitant]
  30. COUMADIN (WARFARIN SODIUM) [Concomitant]
  31. PERCOCET (OXYCOCET) [Concomitant]
  32. ELOTUZUMAB (ELOTUZUMAB) (INJECTION) [Suspect]
     Indication: PLASMA CELL MYELOMA
     Route: 042
     Dates: start: 20121002, end: 201210
  33. DEXAMETHASONE [Suspect]
     Indication: PLASMA CELL MYELOMA
     Route: 042
     Dates: start: 20121002, end: 20121002

REACTIONS (1)
  - Device related infection [None]
